FAERS Safety Report 4633052-4 (Version None)
Quarter: 2005Q2

REPORT INFORMATION
  Report Type: 
  Country: None (occurrence: None)
  Receive Date: 20050325
  Receipt Date: 20050117
  Transmission Date: 20051028
  Serious: No
  Sender: FDA-Public Use
  Company Number: USA030741631

PATIENT
  Age: 80 Year
  Sex: Female
  Weight: 47 kg

DRUGS (9)
  1. FORTEO [Suspect]
     Indication: OSTEOPOROSIS
     Dosage: 20 UG/1 DAY
     Dates: start: 20030601
  2. FORTEO [Suspect]
     Indication: SPINAL FRACTURE
     Dosage: 20 UG/1 DAY
     Dates: start: 20030601
  3. MIACALCIN [Concomitant]
  4. CALTRATE (CALCIUM CARBONATE) [Concomitant]
  5. PRILOSEC [Concomitant]
  6. ACTONEL [Concomitant]
  7. ULTRAM [Concomitant]
  8. ACTIGALL [Concomitant]
  9. VITAMINS [Concomitant]

REACTIONS (16)
  - ASTHENIA [None]
  - BALANCE DISORDER [None]
  - CONFUSIONAL STATE [None]
  - DIZZINESS [None]
  - FALL [None]
  - FATIGUE [None]
  - FEELING ABNORMAL [None]
  - FREQUENT BOWEL MOVEMENTS [None]
  - INJECTION SITE HAEMORRHAGE [None]
  - INSOMNIA [None]
  - MALAISE [None]
  - MUSCULAR WEAKNESS [None]
  - NAUSEA [None]
  - SOMNOLENCE [None]
  - STOMACH DISCOMFORT [None]
  - WEIGHT DECREASED [None]
